FAERS Safety Report 16347552 (Version 1)
Quarter: 2019Q2

REPORT INFORMATION
  Report Type: Spontaneous
  Country: FR (occurrence: FR)
  Receive Date: 20190523
  Receipt Date: 20190523
  Transmission Date: 20190711
  Serious: Yes (Other)
  Sender: FDA-Public Use
  Company Number: FR-MYLANLABS-2019M1046986

PATIENT
  Age: 48 Year
  Sex: Female

DRUGS (1)
  1. ERLOTINIB [Suspect]
     Active Substance: ERLOTINIB
     Indication: NON-SMALL CELL LUNG CANCER
     Dosage: 150 MG, QD
     Route: 065
     Dates: start: 201506

REACTIONS (6)
  - Epilepsy [Unknown]
  - EGFR gene mutation [Unknown]
  - Metastases to meninges [Unknown]
  - Dizziness [Unknown]
  - Headache [Unknown]
  - Dysphagia [Unknown]
